FAERS Safety Report 8496692-0 (Version None)
Quarter: 2012Q3

REPORT INFORMATION
  Report Type: 
  Country: None (occurrence: None)
  Receive Date: 20120709
  Receipt Date: 20120629
  Transmission Date: 20120928
  Serious: Yes (Hospitalization)
  Sender: FDA-Public Use
  Company Number: US-GENZYME-MOZO-1000719

PATIENT
  Sex: Male
  Weight: 86 kg

DRUGS (8)
  1. ETOPOSIDE [Concomitant]
     Indication: ACUTE MYELOID LEUKAEMIA
     Dosage: 206 MG, QD, DAYS 4-8
     Route: 042
     Dates: start: 20120611, end: 20120615
  2. CYTARABINE [Concomitant]
     Indication: ACUTE MYELOID LEUKAEMIA
     Dosage: 2060 MG, QD, DAYS 4-8
     Route: 042
     Dates: start: 20120611, end: 20120615
  3. MITOXANTRONE [Concomitant]
     Indication: ACUTE MYELOID LEUKAEMIA
     Dosage: 16.5 MG, QD, DAYS 4-8
     Route: 042
     Dates: start: 20120611, end: 20120615
  4. HYDROCODONE [Concomitant]
     Indication: PAIN
     Dosage: UNK
     Route: 065
  5. MOZOBIL [Suspect]
     Indication: ACUTE MYELOID LEUKAEMIA
     Dosage: 750 MCG/KG, QD, DAYS 3-8
     Route: 042
     Dates: start: 20120610, end: 20120615
  6. NEUPOGEN [Concomitant]
     Indication: ACUTE MYELOID LEUKAEMIA
     Dosage: 860 MCG, QD, DAYS 1-8
     Route: 058
     Dates: start: 20120608, end: 20120615
  7. MORPHINE [Concomitant]
     Indication: PRODUCT USED FOR UNKNOWN INDICATION
     Route: 065
  8. LORAZEPAM [Concomitant]
     Indication: PRODUCT USED FOR UNKNOWN INDICATION
     Route: 065

REACTIONS (2)
  - HYPOTENSION [None]
  - SEPSIS [None]
